FAERS Safety Report 11780281 (Version 1)
Quarter: 2015Q4

REPORT INFORMATION
  Report Type: Spontaneous
  Country: US (occurrence: US)
  Receive Date: 20151126
  Receipt Date: 20151126
  Transmission Date: 20160305
  Serious: No
  Sender: FDA-Public Use
  Company Number: US-JNJFOC-20151010125

PATIENT
  Age: 59 Year
  Sex: Male
  Weight: 70.31 kg

DRUGS (2)
  1. TYLENOL EXTRA STRENGTH [Suspect]
     Active Substance: ACETAMINOPHEN
     Indication: HEADACHE
     Dosage: TOOK 1-2 TABLETS ONCE TO TWICE A DAY
     Route: 048
     Dates: start: 20151009, end: 20151013
  2. TYLENOL EXTRA STRENGTH [Suspect]
     Active Substance: ACETAMINOPHEN
     Route: 048

REACTIONS (4)
  - Diarrhoea [Recovering/Resolving]
  - Product contamination [Unknown]
  - Product contamination physical [Unknown]
  - Product colour issue [Unknown]

NARRATIVE: CASE EVENT DATE: 20151009
